FAERS Safety Report 9711498 (Version 1)
Quarter: 2013Q4

REPORT INFORMATION
  Report Type: Spontaneous
  Country: US (occurrence: US)
  Receive Date: 20131126
  Receipt Date: 20131126
  Transmission Date: 20140711
  Serious: No
  Sender: FDA-Public Use
  Company Number: US-BRISTOL-MYERS SQUIBB COMPANY-18767277

PATIENT
  Sex: Female

DRUGS (1)
  1. BYDUREON [Suspect]
     Dates: start: 20130130

REACTIONS (4)
  - Injection site reaction [Not Recovered/Not Resolved]
  - Injection site scar [Unknown]
  - Injection site haemorrhage [Not Recovered/Not Resolved]
  - Injection site pruritus [Unknown]
